FAERS Safety Report 8356432-2 (Version None)
Quarter: 2012Q2

REPORT INFORMATION
  Report Type: 
  Country: None (occurrence: None)
  Receive Date: 20120511
  Receipt Date: 20120511
  Transmission Date: 20120825
  Serious: Yes (Other)
  Sender: FDA-Public Use
  Company Number: None

PATIENT
  Age: 61 Year
  Sex: Female
  Weight: 61.2356 kg

DRUGS (1)
  1. LATISSE [Suspect]
     Indication: MADAROSIS
     Dosage: TRIAL SAMPLE

REACTIONS (2)
  - EMOTIONAL DISORDER [None]
  - SKIN DISCOLOURATION [None]
